FAERS Safety Report 6040363-7 (Version None)
Quarter: 2009Q1

REPORT INFORMATION
  Report Type: 
  Country: None (occurrence: None)
  Receive Date: 20090116
  Receipt Date: 20080226
  Transmission Date: 20090719
  Serious: No
  Sender: FDA-Public Use
  Company Number: US-BRISTOL-MYERS SQUIBB COMPANY-14092878

PATIENT
  Age: 51 Year
  Sex: Female

DRUGS (5)
  1. ABILIFY [Suspect]
     Dates: start: 20070927
  2. PROZAC [Concomitant]
     Route: 048
  3. TOPAMAX [Concomitant]
     Route: 048
  4. ELTROXIN [Concomitant]
     Route: 048
  5. ZOPICLONE [Concomitant]

REACTIONS (2)
  - AKATHISIA [None]
  - RESTLESSNESS [None]
